FAERS Safety Report 25603950 (Version 2)
Quarter: 2025Q3

REPORT INFORMATION
  Report Type: Report from Study
  Country: US (occurrence: US)
  Receive Date: 20250725
  Receipt Date: 20250820
  Transmission Date: 20251021
  Serious: Yes (Hospitalization, Other)
  Sender: ACADIA PHARMACEUTICALS
  Company Number: US-ACADIA PHARMACEUTICALS INC.-ACA-2025-PIM-008579

PATIENT
  Age: 72 Year
  Sex: Male

DRUGS (8)
  1. NUPLAZID [Suspect]
     Active Substance: PIMAVANSERIN TARTRATE
     Indication: Parkinson^s disease psychosis
     Dosage: 34 MILLIGRAM, QD
     Route: 048
     Dates: start: 20240730
  2. CARBIDOPA AND LEVODOPA [Concomitant]
     Active Substance: CARBIDOPA\LEVODOPA
  3. ENTACAPONE [Concomitant]
     Active Substance: ENTACAPONE
  4. MEMANTINE [Concomitant]
     Active Substance: MEMANTINE
  5. RIVASTIGMINE [Concomitant]
     Active Substance: RIVASTIGMINE
  6. CRESTOR [Concomitant]
     Active Substance: ROSUVASTATIN CALCIUM
  7. VALSARTAN [Concomitant]
     Active Substance: VALSARTAN
  8. LASIX [Concomitant]
     Active Substance: FUROSEMIDE

REACTIONS (2)
  - Hallucination [Not Recovered/Not Resolved]
  - Fall [Unknown]

NARRATIVE: CASE EVENT DATE: 20250711
